FAERS Safety Report 25131532 (Version 2)
Quarter: 2025Q2

REPORT INFORMATION
  Report Type: Spontaneous
  Country: JP (occurrence: JP)
  Receive Date: 20250327
  Receipt Date: 20250408
  Transmission Date: 20250717
  Serious: Yes (Hospitalization)
  Sender: DAIICHI
  Company Number: JP-DSJP-DS-2025-122853-JP

PATIENT
  Age: 68 Year
  Sex: Female
  Weight: 72 kg

DRUGS (5)
  1. EDOXABAN TOSYLATE [Suspect]
     Active Substance: EDOXABAN TOSYLATE
     Indication: Atrial fibrillation
     Dosage: 60 MG, QD
     Route: 048
     Dates: start: 2019, end: 20241127
  2. TELMISARTAN [Concomitant]
     Active Substance: TELMISARTAN
     Indication: Hypertension
     Dosage: 40 MG, QD
     Route: 048
     Dates: end: 20241128
  3. TELMISARTAN [Concomitant]
     Active Substance: TELMISARTAN
     Dosage: 20 MG, QD
     Route: 048
     Dates: start: 20250122
  4. CILNIDIPINE [Concomitant]
     Active Substance: CILNIDIPINE
     Indication: Hypertension
     Dosage: 5 MG, QD
     Route: 048
  5. ESOMEPRAZOLE [Concomitant]
     Active Substance: ESOMEPRAZOLE
     Indication: Gastrooesophageal reflux disease
     Dosage: 20 MG, QD
     Route: 048
     Dates: end: 20241128

REACTIONS (4)
  - Glomerulonephritis rapidly progressive [Recovered/Resolved]
  - Anticoagulant-related nephropathy [Recovered/Resolved]
  - Incorrect dose administered [Unknown]
  - Diabetes mellitus [Unknown]

NARRATIVE: CASE EVENT DATE: 20241101
